FAERS Safety Report 9111497 (Version 1)
Quarter: 2013Q1

REPORT INFORMATION
  Report Type: Spontaneous
  Country: US (occurrence: US)
  Receive Date: 20130219
  Receipt Date: 20130219
  Transmission Date: 20140127
  Serious: No
  Sender: FDA-Public Use
  Company Number: US-BRISTOL-MYERS SQUIBB COMPANY-17063744

PATIENT
  Age: 46 Year
  Sex: Female

DRUGS (1)
  1. ORENCIA [Suspect]
     Indication: RHEUMATOID ARTHRITIS
     Dosage: INFUSION
     Route: 042
     Dates: start: 20121023

REACTIONS (2)
  - Headache [Recovered/Resolved]
  - Fatigue [Not Recovered/Not Resolved]
